FAERS Safety Report 8567697-6 (Version None)
Quarter: 2012Q3

REPORT INFORMATION
  Report Type: 
  Country: None (occurrence: None)
  Receive Date: 20120803
  Receipt Date: 20120723
  Transmission Date: 20120928
  Serious: No
  Sender: FDA-Public Use
  Company Number: US-ELI_LILLY_AND_COMPANY-US201207007322

PATIENT
  Age: 45 Year
  Sex: Female

DRUGS (2)
  1. MORPHINE SULFATE [Concomitant]
  2. CYMBALTA [Suspect]
     Indication: PAIN
     Dosage: UNK

REACTIONS (7)
  - HYPERHIDROSIS [None]
  - VOMITING [None]
  - SKIN DISORDER [None]
  - DIARRHOEA [None]
  - LIP EXFOLIATION [None]
  - HEPATIC STEATOSIS [None]
  - LIP BLISTER [None]
